FAERS Safety Report 7734864-0 (Version None)
Quarter: 2011Q3

REPORT INFORMATION
  Report Type: 
  Country: None (occurrence: None)
  Receive Date: 20110907
  Receipt Date: 20110901
  Transmission Date: 20111222
  Serious: Yes (Other)
  Sender: FDA-Public Use
  Company Number: NL-ABBOTT-11P-114-0726742-00

PATIENT
  Sex: Female
  Weight: 97 kg

DRUGS (4)
  1. DESLORATADINE [Concomitant]
     Indication: HYPERSENSITIVITY
     Route: 048
     Dates: start: 20080101
  2. LEUPROLIDE ACETATE [Suspect]
     Indication: UTERINE LEIOMYOMA
     Route: 058
     Dates: start: 20110222
  3. FLIXOTIDE [Concomitant]
     Indication: HYPERSENSITIVITY
     Route: 055
     Dates: start: 20080101
  4. LEUPROLIDE ACETATE [Suspect]
     Indication: UTERINE LEIOMYOMA
     Route: 058
     Dates: start: 20110101, end: 20110816

REACTIONS (5)
  - MENORRHAGIA [None]
  - HOT FLUSH [None]
  - SUBCUTANEOUS NODULE [None]
  - MYOMECTOMY [None]
  - UTERINE LEIOMYOMA [None]
